FAERS Safety Report 17420821 (Version 6)
Quarter: 2022Q2

REPORT INFORMATION
  Report Type: Spontaneous
  Country: US (occurrence: US)
  Receive Date: 20200214
  Receipt Date: 20220401
  Transmission Date: 20220720
  Serious: Yes (Other)
  Sender: FDA-Public Use
  Company Number: US-PFIZER INC-2020067034

PATIENT
  Age: 75 Year
  Sex: Female

DRUGS (1)
  1. BOSULIF [Suspect]
     Active Substance: BOSUTINIB MONOHYDRATE
     Indication: Chronic myeloid leukaemia
     Dosage: 400 MG

REACTIONS (7)
  - Second primary malignancy [Unknown]
  - Lung neoplasm malignant [Unknown]
  - Thoracic vertebral fracture [Unknown]
  - Headache [Unknown]
  - Alopecia [Unknown]
  - Nausea [Unknown]
  - Malaise [Unknown]
